FAERS Safety Report 5061622-0 (Version None)
Quarter: 2006Q3

REPORT INFORMATION
  Report Type: 
  Country: None (occurrence: None)
  Receive Date: 20060721
  Receipt Date: 20060705
  Transmission Date: 20061208
  Serious: No
  Sender: FDA-Public Use
  Company Number: US200606004092

PATIENT
  Age: 50 Year
  Sex: Female
  Weight: 102 kg

DRUGS (5)
  1. ZYPREXA [Suspect]
     Dosage: 10 MG, ORAL
     Route: 048
     Dates: end: 20060301
  2. DEPAKOTE [Concomitant]
  3. LITHOBID [Concomitant]
  4. ATIVAN [Concomitant]
  5. CELEXA [Concomitant]

REACTIONS (4)
  - DRUG INEFFECTIVE [None]
  - GRANULOCYTOPENIA [None]
  - WEIGHT INCREASED [None]
  - WHITE BLOOD CELL COUNT DECREASED [None]
